FAERS Safety Report 4678315-1 (Version None)
Quarter: 2005Q2

REPORT INFORMATION
  Report Type: 
  Country: None (occurrence: None)
  Receive Date: 20050531
  Receipt Date: 20050531
  Transmission Date: 20051028
  Serious: Yes (Disabling)
  Sender: FDA-Public Use
  Company Number: None

PATIENT
  Age: 70 Year
  Sex: Male
  Weight: 76.2043 kg

DRUGS (1)
  1. VIAGRA [Suspect]

REACTIONS (1)
  - BLINDNESS UNILATERAL [None]
